FAERS Safety Report 21980698 (Version 2)
Quarter: 2023Q1

REPORT INFORMATION
  Report Type: Spontaneous
  Country: RU (occurrence: RU)
  Receive Date: 20230211
  Receipt Date: 20230225
  Transmission Date: 20230418
  Serious: Yes (Other)
  Sender: FDA-Public Use
  Company Number: RU-002147023-NVSC2023RU028004

PATIENT
  Age: 11 Year
  Sex: Male

DRUGS (3)
  1. TAFINLAR [Suspect]
     Active Substance: DABRAFENIB MESYLATE
     Indication: Product used for unknown indication
     Dosage: UNK
     Route: 065
  2. MEKINIST [Suspect]
     Active Substance: TRAMETINIB DIMETHYL SULFOXIDE
     Indication: Glioma
     Dosage: UNK
     Route: 065
     Dates: start: 2022
  3. MEKINIST [Suspect]
     Active Substance: TRAMETINIB DIMETHYL SULFOXIDE
     Indication: Astrocytoma
     Dosage: 1 DOSAGE FORM, QOD
     Route: 065

REACTIONS (7)
  - Epilepsy [Recovered/Resolved]
  - Hyponatraemia [Recovered/Resolved]
  - Blood electrolytes decreased [Recovering/Resolving]
  - Product availability issue [Unknown]
  - Product use issue [Unknown]
  - Product use in unapproved indication [Unknown]
  - Incorrect dose administered [Unknown]

NARRATIVE: CASE EVENT DATE: 20220101
